FAERS Safety Report 4488152-9 (Version None)
Quarter: 2004Q4

REPORT INFORMATION
  Report Type: 
  Country: None (occurrence: None)
  Receive Date: 20041025
  Receipt Date: 20041013
  Transmission Date: 20050328
  Serious: Yes (Hospitalization)
  Sender: FDA-Public Use
  Company Number: 2004239109DE

PATIENT
  Age: 65 Year
  Sex: Female
  Weight: 86 kg

DRUGS (3)
  1. FARMORUBICIN           (EPIRUBICIN HYDROCHLORIDE) [Suspect]
     Indication: BREAST CANCER
     Dosage: 199 MG, CYCLE 1, IV
     Route: 042
     Dates: start: 20040930
  2. CYCLOPHOSPHAMIDE [Suspect]
     Indication: BREAST CANCER
     Dosage: 995 MG , CYCLE 1, IV
     Route: 042
     Dates: start: 20040930
  3. COMPARATOR-FLUOROURACIL  (FLUOROURACIL) [Suspect]
     Indication: BREAST CANCER
     Dosage: 995 MG, CYCLE 1, IV
     Route: 042
     Dates: start: 20040930

REACTIONS (6)
  - CONSTIPATION [None]
  - LEUKOPENIA [None]
  - MUCOSAL INFLAMMATION [None]
  - NEUTROPENIA [None]
  - URINARY TRACT INFECTION [None]
  - VAGINAL MYCOSIS [None]
